FAERS Safety Report 15920879 (Version 1)
Quarter: 2019Q1

REPORT INFORMATION
  Report Type: Spontaneous
  Country: DE (occurrence: DE)
  Receive Date: 20190205
  Receipt Date: 20190205
  Transmission Date: 20190417
  Serious: Yes (Other)
  Sender: FDA-Public Use
  Company Number: DE-PFIZER INC-2019045968

PATIENT
  Age: 67 Year
  Sex: Female

DRUGS (1)
  1. TORISEL [Suspect]
     Active Substance: TEMSIROLIMUS
     Indication: METASTATIC RENAL CELL CARCINOMA
     Dosage: UNK
     Dates: start: 201807

REACTIONS (7)
  - Immunoglobulins increased [Unknown]
  - Neoplasm progression [Unknown]
  - Intervertebral discitis [Unknown]
  - Back pain [Unknown]
  - Wound infection staphylococcal [Unknown]
  - Bone marrow disorder [Unknown]
  - Blood albumin decreased [Unknown]

NARRATIVE: CASE EVENT DATE: 201810
